FAERS Safety Report 6832558-7 (Version None)
Quarter: 2010Q3

REPORT INFORMATION
  Report Type: 
  Country: None (occurrence: None)
  Receive Date: 20100712
  Receipt Date: 20070314
  Transmission Date: 20110219
  Serious: No
  Sender: FDA-Public Use
  Company Number: US-PFIZER INC-2007021282

PATIENT
  Age: 35 Year
  Sex: Female

DRUGS (2)
  1. CHANTIX [Suspect]
  2. NAPROXEN [Suspect]

REACTIONS (3)
  - HYPERSENSITIVITY [None]
  - PRURITUS [None]
  - RASH [None]
